FAERS Safety Report 23682933 (Version 1)
Quarter: 2024Q1

REPORT INFORMATION
  Report Type: Spontaneous
  Country: US (occurrence: None)
  Receive Date: 20240327
  Receipt Date: 20240327
  Transmission Date: 20240409
  Serious: Yes (Other)
  Sender: FDA-Public Use
  Company Number: None

PATIENT
  Age: 54 Year
  Sex: Female
  Weight: 101.25 kg

DRUGS (25)
  1. QUVIVIQ [Suspect]
     Active Substance: DARIDOREXANT
     Indication: Insomnia
     Dosage: FREQUENCY : AT BEDTIME;?
     Route: 048
     Dates: start: 20240320, end: 20240327
  2. OLMESARTAN [Concomitant]
     Active Substance: OLMESARTAN
  3. ATORVASTATIN [Concomitant]
     Active Substance: ATORVASTATIN
  4. VIIBRYD [Concomitant]
     Active Substance: VILAZODONE HYDROCHLORIDE
  5. METFORMIN HYDROCHLORIDE [Concomitant]
     Active Substance: METFORMIN HYDROCHLORIDE
  6. ACEBUTOLOL [Concomitant]
     Active Substance: ACEBUTOLOL
  7. Timolol Maleate 0.05% drop [Concomitant]
  8. Travoprost 0.004% drop [Concomitant]
  9. CYCLOBENZAPRINE [Concomitant]
     Active Substance: CYCLOBENZAPRINE
  10. CLONAZEPAM [Concomitant]
     Active Substance: CLONAZEPAM
  11. Humlog [Concomitant]
  12. TRESIBA [Concomitant]
     Active Substance: INSULIN DEGLUDEC
  13. HYOSCYAMINE [Concomitant]
     Active Substance: HYOSCYAMINE
  14. OZEMPIC [Concomitant]
     Active Substance: SEMAGLUTIDE
  15. Dotti patch [Concomitant]
  16. PROGESTERONE [Concomitant]
     Active Substance: PROGESTERONE
  17. Enlyte-D [Concomitant]
  18. ASPIRIN [Concomitant]
     Active Substance: ASPIRIN
  19. CETIRIZINE [Concomitant]
     Active Substance: CETIRIZINE HYDROCHLORIDE
  20. PROBIOTICS NOS [Concomitant]
     Active Substance: PROBIOTICS NOS
  21. Mature Women^s multivitamin [Concomitant]
  22. MAALOX ANTACID [Concomitant]
     Active Substance: ALUMINUM HYDROXIDE\DIMETHICONE\MAGNESIUM HYDROXIDE
  23. Dulcolax [Concomitant]
  24. IBUPROFEN [Concomitant]
     Active Substance: IBUPROFEN
  25. BENADRYL [Concomitant]
     Active Substance: DIPHENHYDRAMINE HYDROCHLORIDE

REACTIONS (12)
  - Anxiety [None]
  - Disturbance in attention [None]
  - Thinking abnormal [None]
  - Frustration tolerance decreased [None]
  - Anger [None]
  - Antisocial behaviour [None]
  - Flat affect [None]
  - Fatigue [None]
  - Lethargy [None]
  - Impaired work ability [None]
  - Drug interaction [None]
  - Near death experience [None]

NARRATIVE: CASE EVENT DATE: 20240320
